FAERS Safety Report 11232108 (Version 4)
Quarter: 2015Q3

REPORT INFORMATION
  Report Type: Report from Study
  Country: NL (occurrence: NL)
  Receive Date: 20150701
  Receipt Date: 20150731
  Transmission Date: 20151125
  Serious: Yes (Death)
  Sender: FDA-Public Use
  Company Number: NL-ABBVIE-15P-114-1418933-00

PATIENT
  Age: 74 Year
  Sex: Male

DRUGS (1)
  1. DUODOPA [Suspect]
     Active Substance: CARBIDOPA\LEVODOPA
     Indication: PARKINSON^S DISEASE
     Dosage: 20/5MG/ML, SEE NARRATIVE/CONTINUOUS
     Route: 050
     Dates: start: 20111201, end: 20150627

REACTIONS (6)
  - Aspiration [Fatal]
  - Pulmonary sepsis [Fatal]
  - Oxygen saturation decreased [Fatal]
  - Septic shock [Fatal]
  - Device occlusion [Recovered/Resolved]
  - Sepsis [Fatal]

NARRATIVE: CASE EVENT DATE: 20150624
